FAERS Safety Report 6415914-0 (Version None)
Quarter: 2009Q4

REPORT INFORMATION
  Report Type: 
  Country: None (occurrence: None)
  Receive Date: 20091027
  Receipt Date: 20091020
  Transmission Date: 20100525
  Serious: Yes (Hospitalization)
  Sender: FDA-Public Use
  Company Number: A0812825A

PATIENT
  Age: 62 Year
  Sex: Male
  Weight: 87.3 kg

DRUGS (8)
  1. MELPHALAN [Suspect]
     Indication: MULTIPLE MYELOMA
     Route: 048
     Dates: start: 20090626, end: 20090810
  2. VELCADE [Suspect]
     Indication: MULTIPLE MYELOMA
     Route: 042
     Dates: start: 20090626, end: 20090921
  3. PREDNISONE TAB [Suspect]
     Indication: MULTIPLE MYELOMA
     Route: 048
     Dates: start: 20090626, end: 20090810
  4. PRILOSEC [Concomitant]
  5. MS CONTIN [Concomitant]
  6. HYDROCODONE [Concomitant]
  7. ZOFRAN [Concomitant]
  8. PHENERGAN HCL [Concomitant]

REACTIONS (3)
  - DEHYDRATION [None]
  - NAUSEA [None]
  - VOMITING [None]
